FAERS Safety Report 6059755-5 (Version None)
Quarter: 2009Q1

REPORT INFORMATION
  Report Type: 
  Country: None (occurrence: None)
  Receive Date: 20090130
  Receipt Date: 20090118
  Transmission Date: 20090719
  Serious: Yes (Other)
  Sender: FDA-Public Use
  Company Number: UY-PFIZER INC-2008159422

PATIENT

DRUGS (3)
  1. CHAMPIX [Suspect]
     Indication: SMOKING CESSATION THERAPY
     Dosage: UNK
     Route: 048
     Dates: start: 20080909, end: 20081201
  2. SERTRALINE [Concomitant]
     Dosage: UNK
     Route: 048
  3. BROMAZEPAM [Concomitant]
     Dosage: UNK
     Route: 048

REACTIONS (1)
  - PAIN [None]
